FAERS Safety Report 8142082-X (Version None)
Quarter: 2012Q1

REPORT INFORMATION
  Report Type: 
  Country: None (occurrence: None)
  Receive Date: 20120216
  Receipt Date: 20120206
  Transmission Date: 20120608
  Serious: Yes (Hospitalization, Disabling)
  Sender: FDA-Public Use
  Company Number: JP-ACTELION-A-CH2011-44788

PATIENT
  Sex: Female
  Weight: 49 kg

DRUGS (25)
  1. TRACLEER [Suspect]
     Indication: PULMONARY ARTERIAL HYPERTENSION
     Dosage: 125 MG, BID
     Route: 048
     Dates: start: 20100422, end: 20100826
  2. TRACLEER [Suspect]
     Dosage: 78.125 MG, BID
     Route: 048
     Dates: start: 20100122, end: 20100129
  3. CAPTOPRIL [Concomitant]
  4. TRACLEER [Suspect]
     Dosage: 46.88 MG, QD
     Route: 048
     Dates: start: 20091107, end: 20091114
  5. TRACLEER [Suspect]
     Dosage: 62.5 MG, BID
     Route: 048
     Dates: start: 20100827, end: 20110501
  6. TRACLEER [Suspect]
     Dosage: 46.875 MG, BID
     Route: 048
     Dates: start: 20091128, end: 20091214
  7. ATORVASTATIN CALCIUM [Concomitant]
  8. DEXTROMETHORPHAN HYDROBROMIDE [Concomitant]
  9. TRACLEER [Suspect]
     Dosage: 62.5 MG, QD
     Route: 048
     Dates: start: 20091115, end: 20091127
  10. TRACLEER [Suspect]
     Dosage: 93.75 MG, BID
     Route: 048
     Dates: start: 20100130, end: 20100421
  11. CEFUROXIME AXETIL [Concomitant]
  12. TRACLEER [Suspect]
     Dosage: 15.63 MG, QD
     Route: 048
     Dates: start: 20091026, end: 20091030
  13. LOSARTAN POTASSIUM [Concomitant]
  14. CARBOCISTEINE [Concomitant]
  15. TRACLEER [Suspect]
     Dosage: 31.25 MG, QD
     Route: 048
     Dates: start: 20091031, end: 20091106
  16. TRACLEER [Suspect]
     Dosage: 93.75 MG, BID
     Route: 048
     Dates: start: 20110502, end: 20110529
  17. TRACLEER [Suspect]
     Dosage: 125 MG, BID
     Route: 048
     Dates: start: 20110530
  18. BERAPROST SODIUM [Concomitant]
  19. FUROSEMIDE [Concomitant]
  20. SPIRONOLACTONE [Concomitant]
  21. REBAMIPIDE [Concomitant]
  22. AMBROXOL HYDROCHLORIDE [Concomitant]
  23. OXYGEN [Concomitant]
  24. TRACLEER [Suspect]
     Dosage: 62.5 MG, BID
     Route: 048
     Dates: start: 20091215, end: 20100121
  25. RABEPRAZOLE SODIUM [Concomitant]

REACTIONS (7)
  - HEPATIC FUNCTION ABNORMAL [None]
  - ASPARTATE AMINOTRANSFERASE INCREASED [None]
  - ALANINE AMINOTRANSFERASE INCREASED [None]
  - GAMMA-GLUTAMYLTRANSFERASE INCREASED [None]
  - ENTEROCOLITIS [None]
  - ANAEMIA [None]
  - CARDIAC FAILURE CHRONIC [None]
